FAERS Safety Report 7080633-7 (Version None)
Quarter: 2010Q4

REPORT INFORMATION
  Report Type: 
  Country: None (occurrence: None)
  Receive Date: 20101103
  Receipt Date: 20101026
  Transmission Date: 20110411
  Serious: Yes (Life-Threatening, Hospitalization, Other)
  Sender: FDA-Public Use
  Company Number: FI-BRISTOL-MYERS SQUIBB COMPANY-15326655

PATIENT
  Age: 67 Year
  Sex: Female

DRUGS (38)
  1. ABILIFY [Suspect]
     Indication: MAJOR DEPRESSION
     Route: 048
     Dates: start: 20100630, end: 20100805
  2. SINEMET [Suspect]
     Dates: start: 20100101, end: 20100908
  3. PARLODEL [Suspect]
     Dosage: 1 DF=15MG+15MG+12.5MG  REDUCED ON 4OCT2010 WITH 2.5MG PER WK
  4. EMGESAN [Concomitant]
     Indication: PAIN
     Dosage: TABLET.
     Dates: start: 20100526
  5. VAGIFEM [Concomitant]
     Dosage: VAGIFEM 25 MICROGRAM VAGINAL SUPPOSITORY.
     Dates: start: 20071003
  6. CIPROXIN [Concomitant]
     Indication: PYELONEPHRITIS
     Dosage: TABLETS. ALSO TAKEN ON 16SEP10
     Dates: start: 20100804
  7. KALEORID [Concomitant]
     Indication: HYPOKALAEMIA
     Dosage: 1 DF=7 TABLETS DAILY,KALEORID 750 MG TABLET. 2G+1G DAILY
     Dates: start: 20091222
  8. CALCICHEW D3 [Concomitant]
     Indication: OSTEOPOROSIS PROPHYLAXIS
     Dosage: 1DF=500 MG/10 MICROGR,CALCICHEW D3 500 MG/10 MICROGRAM CHEWING TABLETS.
     Dates: start: 20070301
  9. NULYTELY [Concomitant]
     Indication: CONSTIPATION
     Dosage: 1 DF=1 BAG.MOVICOL POWDER FOR SOLUTION
     Dates: start: 20100621
  10. NEXIUM [Concomitant]
     Indication: PAIN PROPHYLAXIS
     Dosage: NEXIUM 20 MG ENTEROTABLET
     Dates: start: 20090513
  11. MILK OF MAGNESIA TAB [Concomitant]
     Indication: CONSTIPATION
     Dosage: 1DF=82.5 MG/ML.ORAL SUSPENSION
     Route: 048
     Dates: start: 20100523
  12. CIPRALEX [Concomitant]
     Indication: DEPRESSION
     Dosage: TABLET. ALSO TAKEN 5MG ONCE DAILY
     Dates: start: 20100720
  13. TENOX [Concomitant]
     Indication: SLEEP DISORDER
     Dosage: TAB. ALSO TAKEN 10MG DAILY
     Dates: start: 20061204
  14. LYRICA [Concomitant]
     Indication: ANXIETY
     Dosage: CAP.
     Dates: start: 20100716
  15. LYRICA [Concomitant]
     Indication: PAIN
     Dosage: CAP.
     Dates: start: 20100716
  16. PARACETAMOL-RATIOPHARM [Concomitant]
     Indication: PAIN
     Dosage: TAB.
     Dates: start: 20100526
  17. OXYCONTIN [Concomitant]
     Indication: PAIN
     Dosage: OXYCONTIN DEPOTTABLET 10MG,ALSO TAKEN 20MG ONCE DAILY. 30MG TWICE DAILY INCREASED ON 29SEP10
     Dates: start: 20100730
  18. LEVOTHYROXINE SODIUM [Concomitant]
     Indication: HYPOTHYROIDISM
     Dosage: TAB.
     Dates: start: 20080312
  19. DIFORMIN [Concomitant]
     Indication: TYPE 2 DIABETES MELLITUS
     Dosage: DIFORMIN RETARD 1000 MG DEPOTTABLET. ALSO TAKEN AS 1G+500MG DAILY
     Dates: start: 20081105
  20. KLEXANE [Concomitant]
     Indication: THROMBOSIS PROPHYLAXIS
     Dosage: KLEXANE 100 MG/ML INJECTION
     Route: 058
     Dates: start: 20100804
  21. PRAVACHOL [Concomitant]
     Indication: BLOOD CHOLESTEROL INCREASED
     Dates: start: 20080618
  22. LINATIL [Concomitant]
     Indication: CARDIAC FAILURE
     Dosage: TABS.
     Dates: start: 20090828
  23. SELOKEN ZOC [Concomitant]
     Indication: CARDIAC FAILURE
     Dosage: SELOKEN ZOC 47,5 MG DEPOTTABLET
     Dates: start: 20080820
  24. FURESIS [Concomitant]
     Indication: CARDIAC FAILURE
     Dosage: TAB. ALSO TAKEN AS 60MG+40MG DAILY
     Dates: start: 20071205
  25. VISCOTEARS [Concomitant]
     Indication: DRY EYE
     Dosage: 1 DF=2-4 DROPS.OPTHALGEL.
     Dates: start: 20080910
  26. LEVOLAC [Concomitant]
     Indication: CONSTIPATION
     Dosage: LEVOLAC 670 MG/ML ORAL SOLUTION
     Route: 048
     Dates: start: 20070301
  27. TEMESTA [Concomitant]
     Indication: ANXIETY
     Dosage: TAB. 2 PER 1 DAY 0.5MG+1MG DAILY
     Dates: start: 20100722
  28. DIAPAM [Concomitant]
     Indication: ANXIETY
     Dosage: TAB.
     Dates: start: 20100726
  29. FELDENE [Concomitant]
     Indication: PAIN
     Dosage: 1 DF=5 MG/G.
     Dates: start: 20080910
  30. VENTOLIN [Concomitant]
     Indication: DYSPNOEA
     Dosage: VENTOLINE DISCUS 0,2 MG/DOSE POWDER FOR INHALATION
     Route: 045
     Dates: start: 20090805
  31. NITROGLYCERIN [Concomitant]
     Indication: CARDIAC FAILURE
     Dosage: NITRO 0.5 MG RESORBED TABLET
     Dates: start: 20080924
  32. ANTIDEPRESSANT [Concomitant]
  33. OMEPRAZOLE [Concomitant]
  34. LAXOBERON [Concomitant]
  35. PRIMASPAN [Concomitant]
  36. SPIRESIS [Concomitant]
  37. PARACETAMOL [Concomitant]
  38. OPIATE SUBSTANCES [Concomitant]

REACTIONS (6)
  - DELUSION [None]
  - DISORIENTATION [None]
  - NEUROLEPTIC MALIGNANT SYNDROME [None]
  - PAIN [None]
  - SUICIDAL IDEATION [None]
  - URINARY TRACT INFECTION PSEUDOMONAL [None]
